FAERS Safety Report 13686736 (Version 1)
Quarter: 2017Q2

REPORT INFORMATION
  Report Type: Spontaneous
  Country: JP (occurrence: JP)
  Receive Date: 20170623
  Receipt Date: 20170623
  Transmission Date: 20170830
  Serious: Yes (Death)
  Sender: FDA-Public Use
  Company Number: JP-JNJFOC-20170621730

PATIENT
  Age: 86 Year
  Sex: Female
  Weight: 45 kg

DRUGS (6)
  1. FUROSEMIDE. [Concomitant]
     Active Substance: FUROSEMIDE
     Dosage: DOSAGE: UNKNOWN
     Route: 065
  2. DIGOSIN [Concomitant]
     Active Substance: DIGOXIN
     Dosage: DOSAGE: UNKNOWN
     Route: 065
  3. OLMETEC [Concomitant]
     Active Substance: OLMESARTAN MEDOXOMIL
     Dosage: DOSAGE: UNKNOWN
     Route: 048
  4. XARELTO [Suspect]
     Active Substance: RIVAROXABAN
     Indication: CEREBROVASCULAR ACCIDENT PROPHYLAXIS
     Route: 048
     Dates: start: 20141201, end: 20170604
  5. LANSOPRAZOLE. [Concomitant]
     Active Substance: LANSOPRAZOLE
     Dosage: DOSAGE: UNKNOWN
     Route: 065
  6. URSO [Concomitant]
     Active Substance: URSODIOL
     Dosage: DOSAGE: UNKNOWN
     Route: 048

REACTIONS (1)
  - Embolic stroke [Fatal]

NARRATIVE: CASE EVENT DATE: 20170604
